FAERS Safety Report 20543056 (Version 1)
Quarter: 2022Q1

REPORT INFORMATION
  Report Type: Spontaneous
  Country: US (occurrence: US)
  Receive Date: 20220302
  Receipt Date: 20220302
  Transmission Date: 20220424
  Serious: No
  Sender: FDA-Public Use
  Company Number: US-PFIZER INC-2021664271

PATIENT
  Age: 78 Year
  Sex: Female
  Weight: 87.09 kg

DRUGS (4)
  1. TOVIAZ [Suspect]
     Active Substance: FESOTERODINE FUMARATE
     Indication: Urinary incontinence
     Dosage: 8 MG, 1X/DAY
     Route: 048
     Dates: start: 2021
  2. ATENOLOL AL [Concomitant]
     Indication: Hypertension
     Dosage: 50 MG, 2X/DAY
  3. AMLODIPINE [Concomitant]
     Active Substance: AMLODIPINE BESYLATE
     Dosage: UNK (UNSURE OF DOSE THINKS IS 2.5 BUT IS NOT SURE. TAKES 3 DAILY)
  4. FUROSEMIDE [Concomitant]
     Active Substance: FUROSEMIDE
     Indication: Polyuria
     Dosage: 20MG TAKES, 2 AT 8:00AM

REACTIONS (4)
  - Therapeutic response unexpected [Unknown]
  - Therapeutic product effect incomplete [Recovering/Resolving]
  - Fatigue [Unknown]
  - Vein disorder [Unknown]
